FAERS Safety Report 10154901 (Version 1)
Quarter: 2014Q2

REPORT INFORMATION
  Report Type: Spontaneous
  Country: US (occurrence: None)
  Receive Date: 20140505
  Receipt Date: 20140505
  Transmission Date: 20141212
  Serious: Yes (Hospitalization)
  Sender: FDA-Public Use
  Company Number: None

PATIENT
  Age: 52 Year
  Sex: Male
  Weight: 84.7 kg

DRUGS (2)
  1. IBUPROFEN [Suspect]
     Indication: PAIN
     Route: 048
     Dates: start: 20140401, end: 20140430
  2. STRIBILD [Suspect]
     Indication: HIV INFECTION
     Dosage: 1 TAB
     Route: 048
     Dates: start: 20140225, end: 20140430

REACTIONS (2)
  - Renal failure acute [None]
  - Fanconi syndrome [None]
